FAERS Safety Report 8684548 (Version 3)
Quarter: 2013Q4

REPORT INFORMATION
  Report Type: Spontaneous
  Country: US (occurrence: US)
  Receive Date: 20120726
  Receipt Date: 20131101
  Transmission Date: 20140711
  Serious: No
  Sender: FDA-Public Use
  Company Number: US-009507513-1207USA006438

PATIENT
  Age: 78 Year
  Sex: Female
  Weight: 54.42 kg

DRUGS (4)
  1. CLARITIN REDITABS 12HR [Suspect]
     Indication: HYPERSENSITIVITY
     Dosage: 5 MG, QPM
     Route: 048
     Dates: start: 20120619
  2. SYNTHROID [Concomitant]
     Indication: THYROID DISORDER
     Dosage: 75 MG, UNKNOWN
  3. AGGRENOX [Concomitant]
     Indication: THYROID STIMULATING IMMUNOGLOBULIN
     Dosage: 25-200M, UNK
  4. SIMVASTATIN [Concomitant]
     Indication: BLOOD CHOLESTEROL
     Dosage: 20 MG, UNKNOWN

REACTIONS (2)
  - Somnolence [Recovered/Resolved]
  - Fatigue [Recovered/Resolved]
